FAERS Safety Report 8167428-8 (Version None)
Quarter: 2012Q1

REPORT INFORMATION
  Report Type: 
  Country: None (occurrence: None)
  Receive Date: 20120227
  Receipt Date: 20120214
  Transmission Date: 20120608
  Serious: Yes (Hospitalization)
  Sender: FDA-Public Use
  Company Number: AT-NOVOPROD-345103

PATIENT
  Age: 64 Year
  Sex: Female
  Weight: 93 kg

DRUGS (2)
  1. PARKEMED [Concomitant]
     Dosage: UNK
     Dates: start: 20120201, end: 20120206
  2. LIRAGLUTIDE FLEXPEN [Suspect]
     Indication: OBESITY
     Dosage: 3.0 MG, UNK
     Route: 058
     Dates: start: 20110919

REACTIONS (1)
  - CIRCULATORY COLLAPSE [None]
